FAERS Safety Report 5812356-3 (Version None)
Quarter: 2008Q3

REPORT INFORMATION
  Report Type: 
  Country: None (occurrence: None)
  Receive Date: 20080711
  Receipt Date: 20080630
  Transmission Date: 20090109
  Serious: Yes (Other)
  Sender: FDA-Public Use
  Company Number: PHHY2008ZA12141

PATIENT

DRUGS (3)
  1. CERTICAN (RAD) UNKNOWN [Suspect]
     Indication: PROPHYLAXIS AGAINST TRANSPLANT REJECTION
     Dosage: 3 MG PER DAY
  2. ISONIAZID [Concomitant]
  3. PYRIDOXINE (PYRIDOXINE) [Concomitant]

REACTIONS (3)
  - DRUG INTERACTION [None]
  - DRUG LEVEL BELOW THERAPEUTIC [None]
  - HEART TRANSPLANT REJECTION [None]
